FAERS Safety Report 12839899 (Version 2)
Quarter: 2016Q4

REPORT INFORMATION
  Report Type: Report from Study
  Country: US (occurrence: US)
  Receive Date: 20161012
  Receipt Date: 20161027
  Transmission Date: 20170207
  Serious: No
  Sender: FDA-Public Use
  Company Number: US-ALEXION PHARMACEUTICALS INC.-A201607638

PATIENT
  Age: 52 Year
  Sex: Male

DRUGS (1)
  1. SOLIRIS [Suspect]
     Active Substance: ECULIZUMAB
     Indication: PAROXYSMAL NOCTURNAL HAEMOGLOBINURIA
     Dosage: 450 MG, Q2W
     Route: 042
     Dates: start: 20131204, end: 20161014

REACTIONS (6)
  - Nasopharyngitis [Unknown]
  - Somnolence [Unknown]
  - Pain [Unknown]
  - Nausea [Unknown]
  - Blood testosterone decreased [Unknown]
  - Fatigue [Not Recovered/Not Resolved]

NARRATIVE: CASE EVENT DATE: 201610
